FAERS Safety Report 20729692 (Version 2)
Quarter: 2022Q2

REPORT INFORMATION
  Report Type: Report from Study
  Country: US (occurrence: US)
  Receive Date: 20220420
  Receipt Date: 20220506
  Transmission Date: 20220720
  Serious: Yes (Other)
  Sender: FDA-Public Use
  Company Number: US-JNJFOC-20220430522

PATIENT
  Age: 40 Year
  Sex: Male
  Weight: 77.2 kg

DRUGS (39)
  1. SPRAVATO [Suspect]
     Active Substance: ESKETAMINE
     Indication: Depression
     Dosage: ^56 MG, 1 TOTAL DOSE^
     Dates: start: 20191130, end: 20191130
  2. SPRAVATO [Suspect]
     Active Substance: ESKETAMINE
     Dosage: ^28 MG, 1 TOTAL DOSE^
     Dates: start: 20191205, end: 20191205
  3. SPRAVATO [Suspect]
     Active Substance: ESKETAMINE
     Dosage: ^84 MG, 8 TOTAL DOSES^
     Dates: start: 20191227, end: 20200522
  4. SPRAVATO [Suspect]
     Active Substance: ESKETAMINE
     Dosage: ^56 MG, 1 TOTAL DOSE^
     Dates: start: 20200609, end: 20200609
  5. SPRAVATO [Suspect]
     Active Substance: ESKETAMINE
     Dosage: ^84 MG, 69 TOTAL DOSES^
     Dates: start: 20200625, end: 20220325
  6. SPRAVATO [Suspect]
     Active Substance: ESKETAMINE
     Dosage: ^84MG, RECENT DOSE^
     Dates: start: 20220408, end: 20220408
  7. KLONOPIN [Concomitant]
     Active Substance: CLONAZEPAM
     Indication: Anxiety
     Dosage: 1/2 TO 1 TABLET
     Route: 048
     Dates: start: 20220407
  8. KLONOPIN [Concomitant]
     Active Substance: CLONAZEPAM
     Route: 048
     Dates: start: 20211127
  9. BUSPAR [Concomitant]
     Active Substance: BUSPIRONE HYDROCHLORIDE
     Indication: Anxiety
     Dosage: ONE AND HALF TABLET
     Route: 048
     Dates: start: 20220301
  10. BUSPAR [Concomitant]
     Active Substance: BUSPIRONE HYDROCHLORIDE
     Dosage: SMART SIG 1.5 TABLETS
     Route: 048
     Dates: start: 20211217
  11. BUSPAR [Concomitant]
     Active Substance: BUSPIRONE HYDROCHLORIDE
     Dosage: SMART SIG 1.5 TABLETS
     Route: 048
  12. SEROQUEL [Concomitant]
     Active Substance: QUETIAPINE FUMARATE
     Indication: Insomnia
     Dosage: ONE TABLET AT BEDTIME AS NEEDED
     Route: 048
     Dates: start: 20220218
  13. SEROQUEL [Concomitant]
     Active Substance: QUETIAPINE FUMARATE
     Route: 048
     Dates: start: 20211217
  14. HYDROXYZINE HYDROCHLORIDE [Concomitant]
     Active Substance: HYDROXYZINE HYDROCHLORIDE
     Indication: Anxiety
     Dates: start: 20220110
  15. NALTREXONE [Concomitant]
     Active Substance: NALTREXONE
     Route: 048
     Dates: start: 20211222
  16. TRINTELLIX [Concomitant]
     Active Substance: VORTIOXETINE HYDROBROMIDE
     Route: 048
     Dates: start: 20211126
  17. TRINTELLIX [Concomitant]
     Active Substance: VORTIOXETINE HYDROBROMIDE
     Route: 048
     Dates: start: 20211126
  18. TRINTELLIX [Concomitant]
     Active Substance: VORTIOXETINE HYDROBROMIDE
     Route: 048
     Dates: start: 20211230
  19. ELAVIL [Concomitant]
     Active Substance: AMITRIPTYLINE HYDROCHLORIDE
     Route: 048
     Dates: start: 20210517
  20. ELAVIL [Concomitant]
     Active Substance: AMITRIPTYLINE HYDROCHLORIDE
     Route: 048
     Dates: start: 20211209
  21. REXULTI [Concomitant]
     Active Substance: BREXPIPRAZOLE
     Route: 048
     Dates: start: 20210317
  22. PRILOSEC [Concomitant]
     Active Substance: OMEPRAZOLE MAGNESIUM
     Dates: start: 20200728
  23. PRILOSEC [Concomitant]
     Active Substance: OMEPRAZOLE MAGNESIUM
     Route: 048
     Dates: start: 20201103
  24. PRILOSEC [Concomitant]
     Active Substance: OMEPRAZOLE MAGNESIUM
     Route: 048
  25. METFORMIN [Concomitant]
     Active Substance: METFORMIN HYDROCHLORIDE
     Dates: start: 20200228
  26. METFORMIN [Concomitant]
     Active Substance: METFORMIN HYDROCHLORIDE
     Route: 048
     Dates: start: 20200713
  27. METFORMIN [Concomitant]
     Active Substance: METFORMIN HYDROCHLORIDE
     Route: 048
  28. PRINIVIL [Concomitant]
     Active Substance: LISINOPRIL
     Dosage: 1 TABLET
     Dates: start: 20200728
  29. PRINIVIL [Concomitant]
     Active Substance: LISINOPRIL
     Dosage: ALSO MENTIONED AS ZESTRIL.
     Route: 048
     Dates: start: 20200831
  30. TRESIBA [Concomitant]
     Active Substance: INSULIN DEGLUDEC
     Dosage: 16 UNITS
     Route: 058
     Dates: start: 20200728
  31. NOVOLOG [Concomitant]
     Active Substance: INSULIN ASPART
     Dosage: 1 UNIT, 100 UNIT/ML
     Dates: start: 20200728
  32. NOVOLOG [Concomitant]
     Active Substance: INSULIN ASPART
  33. FOLVITE [FOLIC ACID] [Concomitant]
     Route: 048
     Dates: start: 20220111
  34. VITAMIN B1 [Concomitant]
     Active Substance: THIAMINE HYDROCHLORIDE
     Route: 048
     Dates: start: 20220111
  35. ATARAX [Concomitant]
     Active Substance: HYDROXYZINE HYDROCHLORIDE
     Route: 048
     Dates: start: 20210927
  36. ATIVAN [Concomitant]
     Active Substance: LORAZEPAM
     Indication: Anxiety
     Dosage: MAX DOSE 4 MG
     Route: 048
  37. ATIVAN [Concomitant]
     Active Substance: LORAZEPAM
     Dosage: MAX DOSE 4 MG
     Route: 048
     Dates: start: 20220126
  38. ZOFRAN [Concomitant]
     Active Substance: ONDANSETRON HYDROCHLORIDE
     Indication: Vomiting
     Route: 048
     Dates: start: 20220110
  39. ZOFRAN [Concomitant]
     Active Substance: ONDANSETRON HYDROCHLORIDE
     Indication: Nausea

REACTIONS (4)
  - Mental status changes [Recovered/Resolved]
  - Dissociation [Recovered/Resolved]
  - Speech disorder [Recovered/Resolved]
  - Gait disturbance [Recovered/Resolved]

NARRATIVE: CASE EVENT DATE: 20220408
